FAERS Safety Report 7260296-8 (Version None)
Quarter: 2011Q1

REPORT INFORMATION
  Report Type: 
  Country: None (occurrence: None)
  Receive Date: 20110130
  Receipt Date: 20100907
  Transmission Date: 20110831
  Serious: No
  Sender: FDA-Public Use
  Company Number: US-ABBOTT-10P-163-0670214-00

PATIENT
  Sex: Female
  Weight: 48.578 kg

DRUGS (1)
  1. HUMIRA [Suspect]
     Indication: RHEUMATOID ARTHRITIS
     Route: 058
     Dates: start: 20060101, end: 20070101

REACTIONS (5)
  - INJECTION SITE PAIN [None]
  - PHARYNGITIS [None]
  - SINUSITIS [None]
  - EAR INFECTION [None]
  - RESPIRATORY TRACT CONGESTION [None]
